FAERS Safety Report 6682433-6 (Version None)
Quarter: 2010Q2

REPORT INFORMATION
  Report Type: 
  Country: None (occurrence: None)
  Receive Date: 20100415
  Receipt Date: 20100412
  Transmission Date: 20101027
  Serious: Yes (Death)
  Sender: FDA-Public Use
  Company Number: US-ASTRAZENECA-2010SE01678

PATIENT
  Weight: 127.8 kg

DRUGS (7)
  1. SEROQUEL [Suspect]
     Dosage: 50MG-100MG DAILY
     Route: 048
     Dates: start: 20050629
  2. DEPAKOTE [Concomitant]
     Dates: start: 20080806
  3. CLOZAPINE [Concomitant]
     Dates: start: 20050105
  4. BENZTROPINE MESYLATE [Concomitant]
     Dates: start: 20050127
  5. HALOPERIDOL [Concomitant]
     Dates: start: 20050224
  6. LIPITOR [Concomitant]
     Dates: start: 20070713
  7. CLONAZEPAM [Concomitant]
     Dates: start: 20070713

REACTIONS (2)
  - DEATH [None]
  - DIABETES MELLITUS [None]
